FAERS Safety Report 5019770-7 (Version None)
Quarter: 2006Q2

REPORT INFORMATION
  Report Type: 
  Country: None (occurrence: None)
  Receive Date: 20060607
  Receipt Date: 20060523
  Transmission Date: 20061013
  Serious: Yes (Hospitalization)
  Sender: FDA-Public Use
  Company Number: SEWYE645823MAY06

PATIENT
  Sex: Male

DRUGS (7)
  1. ENBREL [Suspect]
     Indication: RHEUMATOID ARTHRITIS
     Route: 058
     Dates: start: 20050420
  2. NEXIUM [Concomitant]
  3. ACETAMINOPHEN [Concomitant]
  4. EMCONCOR [Concomitant]
  5. CALCICHEW [Concomitant]
  6. PREDNISOLONE [Concomitant]
  7. METHOTREXATE [Concomitant]

REACTIONS (1)
  - PSORIASIS [None]
